FAERS Safety Report 8031421-6 (Version None)
Quarter: 2012Q1

REPORT INFORMATION
  Report Type: 
  Country: None (occurrence: None)
  Receive Date: 20120109
  Receipt Date: 20120102
  Transmission Date: 20120608
  Serious: Yes (Death, Hospitalization, Other)
  Sender: FDA-Public Use
  Company Number: US-BAYER-2012-000982

PATIENT
  Age: 17 Year
  Sex: Male

DRUGS (2)
  1. ACETYLSALICYLIC ACID SRT [Suspect]
  2. LORATADINE [Suspect]
     Dosage: 120 DF, ONCE

REACTIONS (7)
  - BLOOD PH DECREASED [None]
  - PH URINE DECREASED [None]
  - PULMONARY OEDEMA [None]
  - HYPERTHERMIA [None]
  - TOXICITY TO VARIOUS AGENTS [None]
  - CONVULSION [None]
  - VENTRICULAR TACHYCARDIA [None]
